FAERS Safety Report 5268869-9 (Version None)
Quarter: 2007Q1

REPORT INFORMATION
  Report Type: 
  Country: None (occurrence: None)
  Receive Date: 20061213
  Receipt Date: 20031204
  Transmission Date: 20070707
  Serious: Yes (Other)
  Sender: FDA-Public Use
  Company Number: 2003UW16101

PATIENT
  Sex: Male

DRUGS (2)
  1. IRESSA [Suspect]
     Dosage: 250 MG PO
     Route: 048
  2. TAXOL [Suspect]

REACTIONS (2)
  - DRUG INTERACTION [None]
  - HYPERHIDROSIS [None]
